FAERS Safety Report 5491563-6 (Version None)
Quarter: 2007Q4

REPORT INFORMATION
  Report Type: 
  Country: None (occurrence: None)
  Receive Date: 20071019
  Receipt Date: 20071019
  Transmission Date: 20080405
  Serious: Yes (Other)
  Sender: FDA-Public Use
  Company Number: None

PATIENT
  Age: 49 Year
  Sex: Male

DRUGS (6)
  1. CRESTOR [Suspect]
     Dates: start: 20031016, end: 20060510
  2. TESTOSTAZINE [Suspect]
     Dates: end: 20060510
  3. TENORMIN [Concomitant]
  4. PRILOSEC [Concomitant]
  5. ASPIRIN [Concomitant]
  6. MULTI-VITAMIN [Concomitant]

REACTIONS (4)
  - ALCOHOLISM [None]
  - BLOOD GLUCOSE INCREASED [None]
  - HEPATITIS [None]
  - LIVER INJURY [None]
